FAERS Safety Report 24205711 (Version 3)
Quarter: 2024Q4

REPORT INFORMATION
  Report Type: Report from Study
  Country: US (occurrence: US)
  Receive Date: 20240813
  Receipt Date: 20241206
  Transmission Date: 20250114
  Serious: Yes (Hospitalization)
  Sender: ROCHE
  Company Number: US-ROCHE-2824251

PATIENT
  Age: 37 Year
  Sex: Female
  Weight: 75.93 kg

DRUGS (10)
  1. OCREVUS [Suspect]
     Active Substance: OCRELIZUMAB
     Indication: Relapsing-remitting multiple sclerosis
     Dosage: DATES OF TREATMENTS WERE REPORTED AS 16/APR/2019, 30/APR/2019, 04/NOV/2019, 05/NOV/2020, 01/MAY/2020
     Route: 042
     Dates: end: 20231204
  2. OCREVUS [Suspect]
     Active Substance: OCRELIZUMAB
     Dosage: DATES OF TREATMENTS WERE REPORTED AS 16/APR/2019, 30/APR/2019, 04/NOV/2019, 05/NOV/2020, 01/MAY/2020
     Route: 042
     Dates: start: 201911
  3. OCREVUS [Suspect]
     Active Substance: OCRELIZUMAB
     Dosage: DATES OF TREATMENTS WERE REPORTED AS 16/APR/2019, 30/APR/2019, 04/NOV/2019, 05/NOV/2020, 01/MAY/2020
     Route: 042
     Dates: start: 201905
  4. LEVAQUIN [Suspect]
     Active Substance: LEVOFLOXACIN
     Indication: Decreased immune responsiveness
     Dosage: THERAPY START DATE: APR-2024
     Route: 065
  5. DOXYCYCLINE [Concomitant]
     Active Substance: DOXYCYCLINE
     Indication: Cough
     Route: 048
     Dates: start: 20210501
  6. ALEGRA [Concomitant]
     Route: 048
     Dates: start: 20211215
  7. XANAX [Concomitant]
     Active Substance: ALPRAZOLAM
  8. FAMOTIDINE [Concomitant]
     Active Substance: FAMOTIDINE
     Indication: Gastrooesophageal reflux disease
     Route: 048
     Dates: start: 202404
  9. OMEPRAZOLE [Concomitant]
     Active Substance: OMEPRAZOLE
     Indication: Gastrooesophageal reflux disease
  10. PFIZER-BIONTECH COVID-19 VACCINE [Concomitant]
     Active Substance: TOZINAMERAN
     Dosage: ONE TIME DOSE.
     Route: 030
     Dates: start: 20211101

REACTIONS (17)
  - Cough [Not Recovered/Not Resolved]
  - Nasopharyngitis [Not Recovered/Not Resolved]
  - Nausea [Recovered/Resolved]
  - Paranasal sinus inflammation [Not Recovered/Not Resolved]
  - Illness [Recovered/Resolved]
  - Upper respiratory tract infection [Not Recovered/Not Resolved]
  - Pneumonia [Recovered/Resolved]
  - Pyrexia [Recovered/Resolved]
  - Memory impairment [Not Recovered/Not Resolved]
  - COVID-19 [Recovered/Resolved]
  - Gastrooesophageal reflux disease [Recovering/Resolving]
  - Maternal exposure before pregnancy [Unknown]
  - Off label use [Unknown]
  - Drug hypersensitivity [Recovered/Resolved]
  - Decreased immune responsiveness [Recovered/Resolved]
  - Anaemia [Not Recovered/Not Resolved]
  - Bronchitis [Recovered/Resolved]

NARRATIVE: CASE EVENT DATE: 20210101
